FAERS Safety Report 7954262-4 (Version None)
Quarter: 2011Q4

REPORT INFORMATION
  Report Type: 
  Country: None (occurrence: None)
  Receive Date: 20111202
  Receipt Date: 20111130
  Transmission Date: 20120403
  Serious: Yes (Other)
  Sender: FDA-Public Use
  Company Number: US-AMGEN-USASP2011053366

PATIENT
  Age: 78 Year
  Sex: Female

DRUGS (9)
  1. PROLIA [Suspect]
     Indication: OSTEOPOROSIS POSTMENOPAUSAL
     Dosage: 60 MG, Q6MO
     Dates: start: 20110930
  2. LIPITOR [Concomitant]
     Dosage: UNK
  3. LOPRESSOR [Concomitant]
     Dosage: UNK
  4. IBUPROFEN (ADVIL) [Concomitant]
     Dosage: UNK
  5. LOPRESSOR [Concomitant]
  6. LIPITOR [Concomitant]
  7. CALCIUM CARBONATE [Concomitant]
     Dosage: UNK
  8. LOPRESSOR [Concomitant]
  9. LIPITOR [Concomitant]

REACTIONS (12)
  - MUSCLE SPASMS [None]
  - EYE DISORDER [None]
  - MALAISE [None]
  - FRACTURE [None]
  - WEIGHT DECREASED [None]
  - PAIN IN EXTREMITY [None]
  - VITAMIN B12 DECREASED [None]
  - TENSION [None]
  - PLATELET COUNT DECREASED [None]
  - DYSPEPSIA [None]
  - HYPOAESTHESIA [None]
  - PARAESTHESIA [None]
